FAERS Safety Report 22086871 (Version 2)
Quarter: 2023Q1

REPORT INFORMATION
  Report Type: Report from Study
  Country: US (occurrence: US)
  Receive Date: 20230312
  Receipt Date: 20230321
  Transmission Date: 20230418
  Serious: No
  Sender: FDA-Public Use
  Company Number: US-002147023-NVSC2023US055781

PATIENT
  Sex: Male

DRUGS (1)
  1. TASIGNA [Suspect]
     Active Substance: NILOTINIB
     Indication: Product used for unknown indication
     Dosage: UNK
     Route: 048

REACTIONS (6)
  - Renal pain [Unknown]
  - Hepatic pain [Unknown]
  - Abdominal pain upper [Unknown]
  - Dehydration [Unknown]
  - Blood glucose increased [Unknown]
  - Fatigue [Unknown]
